FAERS Safety Report 20733849 (Version 1)
Quarter: 2022Q2

REPORT INFORMATION
  Report Type: Other
  Country: FR (occurrence: FR)
  Receive Date: 20220421
  Receipt Date: 20220421
  Transmission Date: 20220721
  Serious: Yes (Hospitalization)
  Sender: FDA-Public Use
  Company Number: None

PATIENT

DRUGS (4)
  1. METFORMIN HYDROCHLORIDE [Suspect]
     Active Substance: METFORMIN HYDROCHLORIDE
     Indication: Intentional overdose
     Dosage: NP 1000MG
     Route: 048
     Dates: start: 20220315
  2. CADUET [Suspect]
     Active Substance: AMLODIPINE BESYLATE\ATORVASTATIN CALCIUM
     Indication: Intentional overdose
     Dosage: UNK
     Route: 048
     Dates: start: 20220315
  3. DEPAKOTE [Suspect]
     Active Substance: DIVALPROEX SODIUM
     Indication: Intentional overdose
     Dosage: UNK
     Route: 048
     Dates: start: 20220315
  4. EFFEXOR [Suspect]
     Active Substance: VENLAFAXINE HYDROCHLORIDE
     Indication: Intentional overdose
     Dosage: UNK
     Route: 048
     Dates: start: 20220315

REACTIONS (6)
  - Altered state of consciousness [Recovering/Resolving]
  - Electrocardiogram QT prolonged [Recovered/Resolved]
  - Acute kidney injury [Recovering/Resolving]
  - Lactic acidosis [Recovering/Resolving]
  - Shock [Recovering/Resolving]
  - Poisoning deliberate [Recovering/Resolving]

NARRATIVE: CASE EVENT DATE: 20220315
